FAERS Safety Report 12489837 (Version 10)
Quarter: 2017Q1

REPORT INFORMATION
  Report Type: Spontaneous
  Country: CA (occurrence: CA)
  Receive Date: 20160622
  Receipt Date: 20170214
  Transmission Date: 20170428
  Serious: Yes (Hospitalization, Other)
  Sender: FDA-Public Use
  Company Number: CA-GLAXOSMITHKLINE-CA2016GSK071763

PATIENT
  Age: 61 Year
  Sex: Male

DRUGS (8)
  1. NUCALA [Suspect]
     Active Substance: MEPOLIZUMAB
     Dosage: 100 MG, MONTHLY
     Dates: start: 20161007
  2. NUCALA [Suspect]
     Active Substance: MEPOLIZUMAB
     Dosage: 100 MG, Z
     Route: 042
     Dates: start: 20161230
  3. VENTOLIN [Suspect]
     Active Substance: ALBUTEROL SULFATE
     Indication: PRODUCT USED FOR UNKNOWN INDICATION
     Dosage: UNK
  4. NUCALA [Suspect]
     Active Substance: MEPOLIZUMAB
     Dosage: 100 MG, Z
     Route: 042
     Dates: start: 20170125
  5. NUCALA [Suspect]
     Active Substance: MEPOLIZUMAB
     Indication: ASTHMA
     Dosage: 100 MG, Z
     Route: 042
     Dates: start: 20160420
  6. NUCALA [Suspect]
     Active Substance: MEPOLIZUMAB
     Dosage: 100 MG, MONTHLY
     Dates: start: 20160907
  7. NUCALA [Suspect]
     Active Substance: MEPOLIZUMAB
     Dosage: 100 MG, MONTHLY
     Dates: start: 20161102
  8. NUCALA [Suspect]
     Active Substance: MEPOLIZUMAB
     Dosage: 100 MG, Z
     Dates: start: 20161130

REACTIONS (17)
  - Rash [Unknown]
  - Nasopharyngitis [Unknown]
  - Myalgia [Unknown]
  - Nasal congestion [Unknown]
  - Photophobia [Recovered/Resolved]
  - Rhinorrhoea [Not Recovered/Not Resolved]
  - Headache [Unknown]
  - Gastric bypass [Unknown]
  - Pyrexia [Recovered/Resolved]
  - Nephrolithiasis [Unknown]
  - Influenza [Unknown]
  - Influenza [Not Recovered/Not Resolved]
  - Cough [Unknown]
  - Asthmatic crisis [Unknown]
  - Headache [Recovered/Resolved]
  - Drug ineffective [Unknown]
  - Hernia [Unknown]

NARRATIVE: CASE EVENT DATE: 2006
